FAERS Safety Report 17206038 (Version 1)
Quarter: 2019Q4

REPORT INFORMATION
  Report Type: Spontaneous
  Country: CA (occurrence: CA)
  Receive Date: 20191227
  Receipt Date: 20191227
  Transmission Date: 20200122
  Serious: Yes (Hospitalization, Other)
  Sender: FDA-Public Use
  Company Number: CA-AUROBINDO-AUR-APL-2019-077095

PATIENT
  Age: 62 Year
  Sex: Male

DRUGS (8)
  1. MIDAZOLAM HYDROCHLORIDE. [Suspect]
     Active Substance: MIDAZOLAM HYDROCHLORIDE
     Indication: CLONUS
     Dosage: 6.5 MILLIGRAM
     Route: 030
  2. HALOPERIDOL. [Suspect]
     Active Substance: HALOPERIDOL
     Indication: AGITATION
     Dosage: 4.0 MILLIGRAM
     Route: 065
  3. LORAZEPAM. [Suspect]
     Active Substance: LORAZEPAM
     Indication: CLONUS
     Dosage: UNK
     Route: 030
  4. LORAZEPAM. [Suspect]
     Active Substance: LORAZEPAM
     Dosage: UNK MG, UNK
     Route: 030
  5. MIDAZOLAM HYDROCHLORIDE. [Suspect]
     Active Substance: MIDAZOLAM HYDROCHLORIDE
     Indication: CLONUS
     Dosage: 8.0 MILLIGRAM
     Route: 030
  6. QUETIAPINE FILM-COATED TABLET [Suspect]
     Active Substance: QUETIAPINE
     Indication: AGITATION
     Dosage: 50.0 MILLIGRAM, FOUR TIMES/DAY
     Route: 065
  7. METOCLOPRAMIDE. [Suspect]
     Active Substance: METOCLOPRAMIDE
     Indication: MALABSORPTION
     Dosage: 50.0 MILLIGRAM, 1 EVERY 6 HOURS
     Route: 065
  8. LORAZEPAM. [Suspect]
     Active Substance: LORAZEPAM
     Indication: CLONUS
     Dosage: 5.0 MILLIGRAM
     Route: 030

REACTIONS (4)
  - Depressed level of consciousness [Unknown]
  - Dystonia [Unknown]
  - Drug ineffective [Unknown]
  - Endotracheal intubation [Unknown]
